FAERS Safety Report 13230906 (Version 1)
Quarter: 2017Q1

REPORT INFORMATION
  Report Type: Spontaneous
  Country: NO (occurrence: NO)
  Receive Date: 20170214
  Receipt Date: 20170214
  Transmission Date: 20170428
  Serious: Yes (Other)
  Sender: FDA-Public Use
  Company Number: NO-AMGEN-NORSP2017021712

PATIENT
  Age: 60 Year
  Sex: Male

DRUGS (3)
  1. VITAMIN D [Concomitant]
     Active Substance: CHOLECALCIFEROL
     Dosage: 400-800 IU
  2. CALCIUM [Concomitant]
     Active Substance: CALCIUM
     Dosage: 500 TO 1000 MG
  3. XGEVA [Suspect]
     Active Substance: DENOSUMAB
     Indication: BONE GIANT CELL TUMOUR
     Dosage: 120 MG, Q4WK
     Route: 058

REACTIONS (2)
  - Osteonecrosis of jaw [Unknown]
  - Bone giant cell tumour [Unknown]
